FAERS Safety Report 10235442 (Version 1)
Quarter: 2014Q1

REPORT INFORMATION
  Report Type: Spontaneous
  Country: US (occurrence: None)
  Receive Date: 20140306
  Receipt Date: 20140306
  Transmission Date: 20141002
  Serious: Yes (Other)
  Sender: FDA-Public Use
  Company Number: 163-21880-13011191

PATIENT
  Age: 78 Year
  Sex: Male

DRUGS (5)
  1. REVLIMID (LENALIDOMIDE) (10 MILLIGRAM, CAPSULES) [Suspect]
     Indication: PLASMA CELL MYELOMA
     Route: 048
     Dates: start: 20101123
  2. SIMVASTATIN (SIMVASTATIN) [Concomitant]
  3. DILTIAZEM (DILTIAZEM) [Concomitant]
  4. DIGOXIN (DIGOXIN) [Concomitant]
  5. ACYCLOVIR (ACICLOVIR) [Concomitant]

REACTIONS (2)
  - Confusional state [None]
  - Adverse drug reaction [None]
